FAERS Safety Report 4714413-1 (Version None)
Quarter: 2005Q3

REPORT INFORMATION
  Report Type: 
  Country: None (occurrence: None)
  Receive Date: 20050714
  Receipt Date: 20050711
  Transmission Date: 20060218
  Serious: Yes (Other)
  Sender: FDA-Public Use
  Company Number: DE-GLAXOSMITHKLINE-D0047067A

PATIENT
  Age: 17 Year
  Sex: Female
  Weight: 57 kg

DRUGS (3)
  1. SEROXAT [Suspect]
     Route: 048
  2. AKINETON [Suspect]
     Route: 048
  3. SOLIAN [Suspect]
     Route: 048

REACTIONS (4)
  - INTENTIONAL MISUSE [None]
  - MYDRIASIS [None]
  - OVERDOSE [None]
  - SUICIDE ATTEMPT [None]
